FAERS Safety Report 13765078 (Version 1)
Quarter: 2017Q3

REPORT INFORMATION
  Report Type: Spontaneous
  Country: CN (occurrence: CN)
  Receive Date: 20170718
  Receipt Date: 20170718
  Transmission Date: 20171127
  Serious: Yes (Other)
  Sender: FDA-Public Use
  Company Number: CN-OTSUKA-2017_015303

PATIENT
  Age: 46 Year
  Sex: Female

DRUGS (7)
  1. ACLACINOMYCIN [Suspect]
     Active Substance: ACLARUBICIN HYDROCHLORIDE
     Indication: ACUTE MYELOID LEUKAEMIA
  2. DECITABINE. [Suspect]
     Active Substance: DECITABINE
     Indication: ACUTE MYELOID LEUKAEMIA RECURRENT
     Dosage: 20 MG/M2,  IN 1 DAY FOR 5 DAYS
     Route: 042
  3. ARA-C [Suspect]
     Active Substance: CYTARABINE
     Indication: ACUTE MYELOID LEUKAEMIA RECURRENT
     Dosage: 10 MG/M2, 2 IN 1 DAY
     Route: 065
  4. ARA-C [Suspect]
     Active Substance: CYTARABINE
     Indication: ACUTE MYELOID LEUKAEMIA
  5. G-CSF [Suspect]
     Active Substance: GRANULOCYTE COLONY-STIMULATING FACTOR NOS
     Indication: ACUTE MYELOID LEUKAEMIA
  6. ACLACINOMYCIN [Suspect]
     Active Substance: ACLARUBICIN HYDROCHLORIDE
     Indication: ACUTE MYELOID LEUKAEMIA RECURRENT
     Dosage: , IN 1 DAY
     Route: 065
  7. G-CSF [Suspect]
     Active Substance: GRANULOCYTE COLONY-STIMULATING FACTOR NOS
     Indication: ACUTE MYELOID LEUKAEMIA RECURRENT
     Dosage: 200 MG/M2,  IN 1 DAY
     Route: 065

REACTIONS (4)
  - Vomiting [Unknown]
  - Bone marrow failure [Recovering/Resolving]
  - Drug-induced liver injury [Recovering/Resolving]
  - Nausea [Unknown]
